FAERS Safety Report 10371420 (Version 1)
Quarter: 2014Q1

REPORT INFORMATION
  Report Type: Spontaneous
  Country: US (occurrence: None)
  Receive Date: 20140306
  Receipt Date: 20140306
  Transmission Date: 20141002
  Serious: Yes (Other)
  Sender: FDA-Public Use
  Company Number: 163-21880-13080579

PATIENT
  Age: 80 Year
  Sex: Male
  Weight: 194 kg

DRUGS (9)
  1. REVLIMID (LENALIDOMIDE) (25 MILLIGRAM, CAPSULES) [Suspect]
     Indication: PLASMA CELL MYELOMA
     Route: 048
     Dates: start: 201102
  2. SINGULAIR (MONTELUKAST SODIUM) (TABLETS) [Concomitant]
  3. DEXAMETHASONE (DEXAMETHASONE) (TABLETS) [Concomitant]
  4. ZOMETA (ZOLEDRONIC ACID) [Concomitant]
  5. NEXIUM (ESOMEPRAZOLE) (SUISTAINED-RELEASE CAPSULE) [Concomitant]
  6. OXYCODONE AND ACETAMINOPHEN (OXYCOCET) [Concomitant]
  7. MECLIZINE (MECLOZINE) (TABLETS) [Concomitant]
  8. PROPAPENONE HCL (PROPAFENONE HYDROCHLORIDE) (SUSTAINED-RELEASE CAPSULE) [Concomitant]
  9. ASPIRIN (ACETYLSALICYLIC ACID) (TABLETS) [Concomitant]

REACTIONS (1)
  - Cataract [None]
